FAERS Safety Report 7558367-1 (Version None)
Quarter: 2011Q2

REPORT INFORMATION
  Report Type: 
  Country: None (occurrence: None)
  Receive Date: 20110620
  Receipt Date: 20110607
  Transmission Date: 20111010
  Serious: Yes (Other)
  Sender: FDA-Public Use
  Company Number: PHHY2011BR24388

PATIENT
  Sex: Female

DRUGS (1)
  1. DIOVAN HCT [Suspect]
     Dosage: 160/ 12.5 MG

REACTIONS (7)
  - BLOOD PRESSURE DIASTOLIC DECREASED [None]
  - ASTHENIA [None]
  - BEDRIDDEN [None]
  - FATIGUE [None]
  - DIZZINESS [None]
  - HYPERTENSION [None]
  - WRONG TECHNIQUE IN DRUG USAGE PROCESS [None]
